FAERS Safety Report 9290427 (Version 3)
Quarter: 2014Q1

REPORT INFORMATION
  Report Type: Spontaneous
  Country: US (occurrence: US)
  Receive Date: 20130515
  Receipt Date: 20140123
  Transmission Date: 20141002
  Serious: No
  Sender: FDA-Public Use
  Company Number: US-PFIZER INC-2013145554

PATIENT
  Age: 43 Year
  Sex: Female
  Weight: 63.49 kg

DRUGS (7)
  1. XELJANZ [Suspect]
     Indication: RHEUMATOID ARTHRITIS
     Dosage: 5 MG, 2X/DAY
     Route: 048
     Dates: start: 20130418
  2. LEVOXYL [Concomitant]
     Indication: HYPOTHYROIDISM
     Dosage: 112 UG, UNK
  3. PLAQUENIL [Concomitant]
     Dosage: 200 MG, 2X/DAY
  4. SYNTHROID [Concomitant]
     Dosage: 125 UG, 1X/DAY
  5. NEURONTIN [Concomitant]
     Dosage: 300 MG, 2X/DAY
  6. RESTASIS [Concomitant]
     Dosage: UNK, 1X/DAY
  7. ADVAIR [Concomitant]
     Dosage: 1 DF (1 PUFF), 1X/DAY

REACTIONS (5)
  - Pruritus [Unknown]
  - Rash erythematous [Not Recovered/Not Resolved]
  - Abdominal pain upper [Unknown]
  - Rash pruritic [Not Recovered/Not Resolved]
  - Urticaria [Unknown]
